FAERS Safety Report 13261128 (Version 1)
Quarter: 2017Q1

REPORT INFORMATION
  Report Type: Not Available
  Country: FR (occurrence: FR)
  Receive Date: 20170222
  Receipt Date: 20170222
  Transmission Date: 20170428
  Serious: Yes (Other)
  Sender: FDA-Public Use
  Company Number: FR-ANIPHARMA-2017-FR-000007

PATIENT
  Age: 80 Year
  Sex: Female

DRUGS (2)
  1. IMATINIB [Suspect]
     Active Substance: IMATINIB
     Dosage: 400 MG DAILY
     Route: 065
     Dates: start: 2004
  2. ERYTHROMYCIN STEARATE (NON-SPECIFIC) [Suspect]
     Active Substance: ERYTHROMYCIN STEARATE
     Route: 065

REACTIONS (2)
  - Drug interaction [Unknown]
  - Palmar-plantar erythrodysaesthesia syndrome [Unknown]
